FAERS Safety Report 11597992 (Version 2)
Quarter: 2019Q1

REPORT INFORMATION
  Report Type: Spontaneous
  Country: US (occurrence: US)
  Receive Date: 20151006
  Receipt Date: 20190214
  Transmission Date: 20190417
  Serious: No
  Sender: FDA-Public Use
  Company Number: US-ROCHE-1587082

PATIENT
  Age: 75 Year
  Sex: Female

DRUGS (3)
  1. ERIVEDGE [Suspect]
     Active Substance: VISMODEGIB
     Indication: BASAL CELL CARCINOMA
     Route: 048
     Dates: start: 201504
  2. ERIVEDGE [Suspect]
     Active Substance: VISMODEGIB
     Indication: BASAL CELL CARCINOMA
     Dosage: TO HAVE 3 MO. OFF AFTER 3 MO. ON THE MEDICATION
     Route: 048
     Dates: start: 201703
  3. ERIVEDGE [Suspect]
     Active Substance: VISMODEGIB
     Dosage: TO HAVE 3 MONTHS OFF AFTER 3 MONTHS ON THE MEDICATION
     Route: 048
     Dates: start: 201703

REACTIONS (10)
  - Asthenia [Unknown]
  - Vomiting [Unknown]
  - Arthralgia [Unknown]
  - Diarrhoea [Unknown]
  - Decreased appetite [Not Recovered/Not Resolved]
  - Muscle spasms [Not Recovered/Not Resolved]
  - Ageusia [Not Recovered/Not Resolved]
  - Myalgia [Not Recovered/Not Resolved]
  - Fatigue [Not Recovered/Not Resolved]
  - Dysgeusia [Not Recovered/Not Resolved]

NARRATIVE: CASE EVENT DATE: 201505
